FAERS Safety Report 6805456-2 (Version None)
Quarter: 2010Q2

REPORT INFORMATION
  Report Type: 
  Country: None (occurrence: None)
  Receive Date: 20100628
  Receipt Date: 20071212
  Transmission Date: 20101027
  Serious: No
  Sender: FDA-Public Use
  Company Number: US-PFIZER INC-2007102969

PATIENT
  Sex: Female

DRUGS (3)
  1. CADUET [Suspect]
     Indication: HYPERTENSION
     Dosage: 5MG/10MG DAILY EVERY DAY TDD:5MG/10MG
     Dates: start: 20071203
  2. CADUET [Suspect]
     Indication: BLOOD CHOLESTEROL INCREASED
  3. NORVASC [Concomitant]

REACTIONS (3)
  - ABDOMINAL DISCOMFORT [None]
  - MYALGIA [None]
  - NAUSEA [None]
